FAERS Safety Report 9787692 (Version 1)
Quarter: 2013Q4

REPORT INFORMATION
  Report Type: Spontaneous
  Country: CH (occurrence: CH)
  Receive Date: 20131230
  Receipt Date: 20131230
  Transmission Date: 20140711
  Serious: Yes (Hospitalization, Disabling)
  Sender: FDA-Public Use
  Company Number: CH-JNJFOC-20131214711

PATIENT
  Age: 80 Year
  Sex: Female

DRUGS (5)
  1. XARELTO [Suspect]
     Indication: EMBOLISM VENOUS
     Route: 048
     Dates: start: 201211
  2. AXURA [Suspect]
     Indication: DEMENTIA
     Route: 048
     Dates: start: 20131113
  3. TAMOXIFEN [Suspect]
     Indication: BREAST CANCER IN SITU
     Route: 048
  4. CALCIMAGON-D3 [Concomitant]
     Route: 065
  5. BLOPRESS [Concomitant]
     Route: 065

REACTIONS (1)
  - Cerebral infarction [Unknown]
